FAERS Safety Report 20566981 (Version 2)
Quarter: 2022Q2

REPORT INFORMATION
  Report Type: Report from Study
  Country: TH (occurrence: TH)
  Receive Date: 20220308
  Receipt Date: 20220407
  Transmission Date: 20220720
  Serious: Yes (Hospitalization, Other)
  Sender: FDA-Public Use
  Company Number: TH-BAYER-2022A030077

PATIENT
  Age: 79 Year
  Sex: Male

DRUGS (1)
  1. STIVARGA [Suspect]
     Active Substance: REGORAFENIB
     Indication: Colorectal cancer
     Dosage: 80 MG, QD
     Route: 048
     Dates: start: 20211011, end: 202202

REACTIONS (8)
  - Pulmonary oedema [Not Recovered/Not Resolved]
  - Colorectal cancer [Not Recovered/Not Resolved]
  - Hypertension [None]
  - Fatigue [Not Recovered/Not Resolved]
  - Gait disturbance [Not Recovered/Not Resolved]
  - Amnesia [Not Recovered/Not Resolved]
  - Drug resistance [Not Recovered/Not Resolved]
  - Off label use [None]

NARRATIVE: CASE EVENT DATE: 20211011
